FAERS Safety Report 21166500 (Version 4)
Quarter: 2023Q1

REPORT INFORMATION
  Report Type: Report from Study
  Country: US (occurrence: US)
  Receive Date: 20220803
  Receipt Date: 20230315
  Transmission Date: 20230417
  Serious: No
  Sender: FDA-Public Use
  Company Number: US-NOVARTISTESTPH-NVSC2022US175351

PATIENT
  Age: 3 Year
  Sex: Female

DRUGS (1)
  1. ILARIS [Suspect]
     Active Substance: CANAKINUMAB
     Indication: Juvenile idiopathic arthritis
     Dosage: 60 MG, Q4W
     Route: 058
     Dates: start: 20211119

REACTIONS (6)
  - COVID-19 [Unknown]
  - Nasopharyngitis [Recovering/Resolving]
  - Sinusitis [Recovering/Resolving]
  - Cough [Recovering/Resolving]
  - Rhinorrhoea [Recovering/Resolving]
  - Ear infection [Unknown]

NARRATIVE: CASE EVENT DATE: 20230306
